FAERS Safety Report 15625033 (Version 1)
Quarter: 2018Q4

REPORT INFORMATION
  Report Type: Spontaneous
  Country: US (occurrence: US)
  Receive Date: 20181112
  Receipt Date: 20181112
  Transmission Date: 20190205
  Serious: Yes (Life-Threatening)
  Sender: FDA-Public Use
  Company Number: None

PATIENT
  Age: 65 Year
  Sex: Male
  Weight: 113.8 kg

DRUGS (2)
  1. HEPARIN [Suspect]
     Active Substance: HEPARIN SODIUM
     Indication: THROMBOSIS PROPHYLAXIS
     Route: 058
     Dates: start: 20110512, end: 20110617
  2. PIPERACILLIN/TAZOBACTAM [Suspect]
     Active Substance: PIPERACILLIN SODIUM\TAZOBACTAM SODIUM
     Indication: PNEUMONIA
     Route: 042
     Dates: start: 20110607, end: 20110616

REACTIONS (12)
  - Confusional state [None]
  - Red blood cell schistocytes present [None]
  - Anaemia [None]
  - Plasmapheresis [None]
  - Purpura [None]
  - Thrombotic thrombocytopenic purpura [None]
  - Heparin-induced thrombocytopenia test positive [None]
  - Pyrexia [None]
  - Haemodialysis [None]
  - Blood lactate dehydrogenase increased [None]
  - Thrombocytopenia [None]
  - Acute kidney injury [None]

NARRATIVE: CASE EVENT DATE: 20110607
